FAERS Safety Report 15335861 (Version 1)
Quarter: 2018Q3

REPORT INFORMATION
  Report Type: Spontaneous
  Country: US (occurrence: US)
  Receive Date: 20180830
  Receipt Date: 20180830
  Transmission Date: 20181010
  Serious: Yes (Hospitalization, Other)
  Sender: FDA-Public Use
  Company Number: US-BAYER-2018-158168

PATIENT
  Age: 43 Year
  Sex: Female

DRUGS (1)
  1. MIRENA [Suspect]
     Active Substance: LEVONORGESTREL
     Indication: ENDOMETRIAL ATROPHY
     Dosage: 20 MCG/24HR, CONT
     Route: 015
     Dates: start: 20171204, end: 201806

REACTIONS (15)
  - Procedural dizziness [None]
  - Abdominal distension [None]
  - Nipple exudate bloody [None]
  - Nausea [Not Recovered/Not Resolved]
  - Breast operation [None]
  - Breast pain [None]
  - Dizziness [None]
  - Metrorrhagia [None]
  - Product use in unapproved indication [None]
  - Procedural nausea [None]
  - Premenstrual cramps [None]
  - Off label use [None]
  - Menstruation delayed [None]
  - Malaise [None]
  - Menorrhagia [None]

NARRATIVE: CASE EVENT DATE: 20171204
